FAERS Safety Report 5064944-2 (Version None)
Quarter: 2006Q3

REPORT INFORMATION
  Report Type: 
  Country: None (occurrence: None)
  Receive Date: 20060727
  Receipt Date: 20060727
  Transmission Date: 20061208
  Serious: Yes (Death)
  Sender: FDA-Public Use
  Company Number: None

PATIENT
  Sex: Male
  Weight: 126.5536 kg

DRUGS (4)
  1. ANGIOMAX [Suspect]
     Indication: ANTICOAGULANT THERAPY
     Dosage: 19CC BOLUS/44CC IV INFUSION
     Route: 042
     Dates: start: 20060418, end: 20060418
  2. ANGIOMAX [Suspect]
     Indication: PERCUTANEOUS CORONARY INTERVENTION
     Dosage: 19CC BOLUS/44CC IV INFUSION
     Route: 042
     Dates: start: 20060418, end: 20060418
  3. PLAVIX [Suspect]
     Indication: ANTIPLATELET THERAPY
     Dosage: 600, 75   LOADING, MAINT.   PO
     Route: 048
     Dates: start: 20060418, end: 20060601
  4. PLAVIX [Suspect]
     Indication: PERCUTANEOUS CORONARY INTERVENTION
     Dosage: 600, 75   LOADING, MAINT.   PO
     Route: 048
     Dates: start: 20060418, end: 20060601

REACTIONS (1)
  - CEREBRAL HAEMORRHAGE [None]
